FAERS Safety Report 8171201-4 (Version None)
Quarter: 2012Q1

REPORT INFORMATION
  Report Type: 
  Country: None (occurrence: None)
  Receive Date: 20120228
  Receipt Date: 20120105
  Transmission Date: 20120608
  Serious: No
  Sender: FDA-Public Use
  Company Number: US-BRISTOL-MYERS SQUIBB COMPANY-16327405

PATIENT
  Sex: Female

DRUGS (5)
  1. METFORMIN HCL [Suspect]
     Dosage: ONCE IN THE MOR AND ONCE IN THE EVE
  2. GLIPIZIDE [Suspect]
     Dates: start: 20120104
  3. ONGLYZA [Suspect]
  4. LOSARTAN POTASSIUM [Concomitant]
  5. TRIAMTERENE [Concomitant]

REACTIONS (1)
  - DRUG INEFFECTIVE [None]
